FAERS Safety Report 18899376 (Version 1)
Quarter: 2021Q1

REPORT INFORMATION
  Report Type: Spontaneous
  Country: US (occurrence: US)
  Receive Date: 20210216
  Receipt Date: 20210216
  Transmission Date: 20210420
  Serious: No
  Sender: FDA-Public Use
  Company Number: US-JNJFOC-20210210544

PATIENT
  Age: 48 Year
  Sex: Male
  Weight: 100.33 kg

DRUGS (1)
  1. MENS ROGAINE EXTRA STRENGTH [Suspect]
     Active Substance: MINOXIDIL
     Indication: PRODUCT USED FOR UNKNOWN INDICATION
     Dosage: COUPLE OF DROPS LIKE 6 TO 8 DROPS?LAST USE DATE: 31?JAN?2021.
     Route: 061
     Dates: start: 20210131

REACTIONS (4)
  - Incorrect dose administered [Unknown]
  - Euphoric mood [Recovering/Resolving]
  - Palpitations [Recovering/Resolving]
  - Vision blurred [Recovering/Resolving]

NARRATIVE: CASE EVENT DATE: 20210131
